FAERS Safety Report 10574678 (Version 2)
Quarter: 2014Q4

REPORT INFORMATION
  Report Type: Spontaneous
  Country: US (occurrence: US)
  Receive Date: 20141110
  Receipt Date: 20141201
  Transmission Date: 20150529
  Serious: Yes (Hospitalization, Other)
  Sender: FDA-Public Use
  Company Number: US-PFIZER INC-2014305154

PATIENT
  Age: 47 Year
  Sex: Female
  Weight: 74 kg

DRUGS (1)
  1. CELEBREX [Suspect]
     Active Substance: CELECOXIB
     Indication: FIBROMYALGIA
     Dosage: UNK
     Dates: start: 1997, end: 2006

REACTIONS (15)
  - Confusional state [Unknown]
  - Fall [Unknown]
  - Peroneal nerve palsy [Unknown]
  - Acute kidney injury [Unknown]
  - Head injury [Unknown]
  - Facial bones fracture [Unknown]
  - Meningitis [Unknown]
  - Encephalitis [Unknown]
  - Salmonellosis [Unknown]
  - Multiple fractures [Unknown]
  - Osteomyelitis [Unknown]
  - Feeding disorder [Unknown]
  - Product use issue [Unknown]
  - Blood pressure increased [Unknown]
  - Vision blurred [Unknown]

NARRATIVE: CASE EVENT DATE: 1997
